FAERS Safety Report 4554440-0 (Version None)
Quarter: 2005Q1

REPORT INFORMATION
  Report Type: 
  Country: None (occurrence: None)
  Receive Date: 20050118
  Receipt Date: 20050111
  Transmission Date: 20050727
  Serious: Yes (Hospitalization)
  Sender: FDA-Public Use
  Company Number: CA-AMGEN-US107274

PATIENT
  Sex: Male

DRUGS (2)
  1. ENBREL [Suspect]
     Indication: PSORIATIC ARTHROPATHY
     Dates: start: 20040901, end: 20041201
  2. ENBREL [Suspect]
     Dates: start: 20050106

REACTIONS (3)
  - AORTIC DISSECTION [None]
  - CONDITION AGGRAVATED [None]
  - PSORIASIS [None]
